FAERS Safety Report 8542203-0 (Version None)
Quarter: 2012Q3

REPORT INFORMATION
  Report Type: 
  Country: None (occurrence: None)
  Receive Date: 20120726
  Receipt Date: 20111012
  Transmission Date: 20120928
  Serious: No
  Sender: FDA-Public Use
  Company Number: US-ASTRAZENECA-2011SE61456

PATIENT
  Age: 54 Year
  Sex: Female
  Weight: 59 kg

DRUGS (3)
  1. CLONIDINE [Concomitant]
     Indication: HYPERTENSION
  2. SEROQUEL XR [Suspect]
     Indication: BIPOLAR DISORDER
     Route: 048
  3. SIMBALTA [Concomitant]

REACTIONS (2)
  - DRUG DOSE OMISSION [None]
  - DEPRESSION [None]
